FAERS Safety Report 7894442-X (Version None)
Quarter: 2011Q4

REPORT INFORMATION
  Report Type: 
  Country: None (occurrence: None)
  Receive Date: 20111105
  Receipt Date: 20111028
  Transmission Date: 20120403
  Serious: Yes (Other)
  Sender: FDA-Public Use
  Company Number: US-ASTRAZENECA-2011SE65628

PATIENT
  Age: 46 Year
  Sex: Female

DRUGS (1)
  1. SEROQUEL XR [Suspect]
     Indication: DEPRESSION
     Route: 048

REACTIONS (2)
  - BEDRIDDEN [None]
  - ACCIDENT AT WORK [None]
